FAERS Safety Report 18997821 (Version 1)
Quarter: 2021Q1

REPORT INFORMATION
  Report Type: Report from Study
  Country: NL (occurrence: NL)
  Receive Date: 20210311
  Receipt Date: 20210311
  Transmission Date: 20210420
  Serious: Yes (Other)
  Sender: FDA-Public Use
  Company Number: NL-VER-202100003

PATIENT
  Age: 79 Year
  Sex: Male

DRUGS (1)
  1. TRIPTORELIN PAMOATE [Suspect]
     Active Substance: TRIPTORELIN PAMOATE
     Indication: PRODUCT USED FOR UNKNOWN INDICATION
     Dosage: START: 02?FEB?2021
     Route: 030
     Dates: start: 202102

REACTIONS (1)
  - Metastases to spinal cord [Not Recovered/Not Resolved]

NARRATIVE: CASE EVENT DATE: 202102
